FAERS Safety Report 6704439-0 (Version None)
Quarter: 2010Q2

REPORT INFORMATION
  Report Type: 
  Country: None (occurrence: None)
  Receive Date: 20100430
  Receipt Date: 20100416
  Transmission Date: 20101027
  Serious: Yes (Death)
  Sender: FDA-Public Use
  Company Number: IE-MEDIMMUNE-MEDI-0010057

PATIENT
  Sex: Male

DRUGS (4)
  1. SYNAGIS [Suspect]
     Route: 030
     Dates: start: 20091002, end: 20091130
  2. VALPROATE SODIUM [Concomitant]
  3. HYOSCINE [Concomitant]
  4. CAFFEINE [Concomitant]

REACTIONS (1)
  - APNOEA [None]
